FAERS Safety Report 23810049 (Version 1)
Quarter: 2024Q2

REPORT INFORMATION
  Report Type: Spontaneous
  Country: US (occurrence: None)
  Receive Date: 20240501
  Receipt Date: 20240501
  Transmission Date: 20240716
  Serious: Yes (Hospitalization)
  Sender: FDA-Public Use
  Company Number: None

PATIENT
  Sex: Male

DRUGS (3)
  1. XALKORI [Suspect]
     Active Substance: CRIZOTINIB
     Indication: Anaplastic large cell lymphoma T- and null-cell types
     Dosage: FREQUENCY : DAILY;?
     Route: 048
     Dates: start: 202403
  2. XALKORI [Suspect]
     Active Substance: CRIZOTINIB
     Indication: Diffuse large B-cell lymphoma
  3. XALKORI [Suspect]
     Active Substance: CRIZOTINIB
     Indication: Anaplastic large cell lymphoma T- and null-cell types
     Dosage: FREQUENCY : TWICE A DAY;?
     Route: 048
     Dates: start: 202403

REACTIONS (1)
  - Chest pain [None]
